FAERS Safety Report 20898641 (Version 1)
Quarter: 2022Q2

REPORT INFORMATION
  Report Type: Spontaneous
  Country: JP (occurrence: JP)
  Receive Date: 20220601
  Receipt Date: 20220601
  Transmission Date: 20220721
  Serious: Yes (Other)
  Sender: FDA-Public Use
  Company Number: JP-JNJFOC-20220561520

PATIENT
  Age: 76 Year
  Sex: Female
  Weight: 37 kg

DRUGS (4)
  1. SIMPONI [Suspect]
     Active Substance: GOLIMUMAB
     Indication: Rheumatoid arthritis
     Route: 058
     Dates: start: 20160526, end: 20220324
  2. METHOTREXATE [Suspect]
     Active Substance: METHOTREXATE
     Dosage: 8MG
     Route: 065
     Dates: end: 2022
  3. METHOTREXATE [Suspect]
     Active Substance: METHOTREXATE
     Dosage: 4MG PER WEEK
     Route: 065
     Dates: start: 20220526
  4. MEDROL [Suspect]
     Active Substance: METHYLPREDNISOLONE
     Route: 048

REACTIONS (1)
  - Pneumonia bacterial [Recovering/Resolving]

NARRATIVE: CASE EVENT DATE: 20220324
